FAERS Safety Report 8354902-4 (Version None)
Quarter: 2012Q2

REPORT INFORMATION
  Report Type: 
  Country: None (occurrence: None)
  Receive Date: 20120511
  Receipt Date: 20120501
  Transmission Date: 20120825
  Serious: Yes (Hospitalization)
  Sender: FDA-Public Use
  Company Number: US-JNJFOC-20120502013

PATIENT
  Sex: Female
  Weight: 104.33 kg

DRUGS (2)
  1. INVEGA [Suspect]
     Indication: SCHIZOAFFECTIVE DISORDER
     Route: 048
     Dates: end: 20120201
  2. INVEGA [Suspect]
     Indication: BIPOLAR DISORDER
     Route: 048
     Dates: end: 20120201

REACTIONS (13)
  - ASTHENIA [None]
  - ABNORMAL LOSS OF WEIGHT [None]
  - GASTRITIS EROSIVE [None]
  - DIZZINESS [None]
  - DYSKINESIA [None]
  - PAIN IN EXTREMITY [None]
  - CONFUSIONAL STATE [None]
  - GALLBLADDER DISORDER [None]
  - PAIN [None]
  - COLONIC POLYP [None]
  - ANGINA PECTORIS [None]
  - HYPOTENSION [None]
  - DIPLOPIA [None]
